FAERS Safety Report 9511121 (Version 1)
Quarter: 2013Q3

REPORT INFORMATION
  Report Type: Spontaneous
  Country: US (occurrence: None)
  Receive Date: 20130905
  Receipt Date: 20130905
  Transmission Date: 20140515
  Serious: Yes (Other)
  Sender: FDA-Public Use
  Company Number: DEP_01039_2013

PATIENT
  Sex: Female
  Weight: 93.44 kg

DRUGS (1)
  1. ZIPSOR [Suspect]
     Indication: ARTHRITIS
     Route: 048
     Dates: start: 201308, end: 20130818

REACTIONS (3)
  - Skin mass [None]
  - Thrombosis [None]
  - Skin discolouration [None]
